FAERS Safety Report 4592687-8 (Version None)
Quarter: 2005Q1

REPORT INFORMATION
  Report Type: 
  Country: None (occurrence: None)
  Receive Date: 20050228
  Receipt Date: 20050217
  Transmission Date: 20050727
  Serious: Yes (Hospitalization)
  Sender: FDA-Public Use
  Company Number: FR-AMGEN-UK115090

PATIENT
  Age: 78 Year
  Sex: Male
  Weight: 72 kg

DRUGS (8)
  1. ARANESP [Suspect]
     Indication: RENAL FAILURE CHRONIC
     Route: 058
  2. COUMADIN [Suspect]
     Route: 048
  3. LASILIX [Suspect]
     Route: 048
  4. PYOSTACINE [Suspect]
     Route: 048
     Dates: start: 20041109, end: 20041124
  5. TRACLEER [Suspect]
     Route: 048
  6. AMLOR [Suspect]
     Route: 048
  7. TARDYFERON [Concomitant]
     Route: 065
  8. LANTUS [Concomitant]
     Route: 065

REACTIONS (9)
  - ACUTE PULMONARY OEDEMA [None]
  - ANAEMIA [None]
  - DISEASE PROGRESSION [None]
  - GENERALISED OEDEMA [None]
  - HAEMODIALYSIS [None]
  - HYPERNATRAEMIA [None]
  - RENAL FAILURE ACUTE [None]
  - RENAL IMPAIRMENT [None]
  - TREATMENT NONCOMPLIANCE [None]
